FAERS Safety Report 12859664 (Version 2)
Quarter: 2016Q4

REPORT INFORMATION
  Report Type: Report from Study
  Country: IN (occurrence: IN)
  Receive Date: 20161018
  Receipt Date: 20161220
  Transmission Date: 20170207
  Serious: Yes (Hospitalization, Other)
  Sender: FDA-Public Use
  Company Number: IN-B.I. PHARMACEUTICALS,INC./RIDGEFIELD-2015-BI-61835BI

PATIENT
  Age: 78 Year
  Sex: Male
  Weight: 60 kg

DRUGS (18)
  1. FLAVEDON [Concomitant]
     Indication: ANGINA UNSTABLE
     Dosage: MR
     Route: 048
     Dates: start: 20150908
  2. COQ [Concomitant]
     Indication: SUPPLEMENTATION THERAPY
     Route: 048
     Dates: start: 20150908
  3. LIPICURE [Concomitant]
     Indication: LIPIDS INCREASED
     Route: 048
     Dates: start: 20160404
  4. LOOZ [Concomitant]
     Indication: CONSTIPATION
     Dosage: FORMULATION : LIQUID; DAILY DOSE: 20 ML SOS (AS REQUIRED)
     Route: 048
     Dates: start: 20150916
  5. TOR PLUS [Concomitant]
     Route: 048
     Dates: start: 20151110, end: 20160203
  6. ALDACTONE [Concomitant]
     Active Substance: SPIRONOLACTONE
     Indication: POLYURIA
     Route: 048
     Dates: start: 20160602
  7. ISOLAZINE [Concomitant]
     Indication: ANGINA UNSTABLE
     Route: 048
     Dates: start: 20150911
  8. SUPRADYN [Concomitant]
     Active Substance: ASCORBIC ACID\MINERALS\VITAMINS
     Indication: VITAMIN SUPPLEMENTATION
     Route: 048
     Dates: start: 20160404, end: 20160605
  9. TOR PLUS [Concomitant]
     Indication: POLYURIA
     Route: 048
     Dates: start: 20150909, end: 20151109
  10. RABELOC-RD [Concomitant]
     Indication: ANTIEMETIC SUPPORTIVE CARE
     Dosage: DAILY DOSE: 40 MG + 60 MG
     Route: 048
     Dates: start: 20150910
  11. RABELOC-RD [Concomitant]
     Indication: GASTRIC PH DECREASED
     Route: 048
     Dates: start: 20150910
  12. TOR PLUS [Concomitant]
     Route: 048
     Dates: start: 20160204, end: 20160214
  13. TOR PLUS [Concomitant]
     Route: 048
     Dates: start: 20160215, end: 20160602
  14. TOR PLUS [Concomitant]
     Route: 048
     Dates: start: 20150909, end: 20151109
  15. DABIGATRAN [Suspect]
     Active Substance: DABIGATRAN
     Indication: ATRIAL FIBRILLATION
     Route: 048
     Dates: start: 20150911
  16. LIPICURE [Concomitant]
     Route: 048
     Dates: start: 20150910
  17. ISOLAZINE [Concomitant]
     Dosage: DOSE PER APPLICATION AND DAILY DOSE-30 MG+56.2 MG
     Route: 048
     Dates: start: 20160602
  18. TOR PLUS [Concomitant]
     Dosage: DOSE PER APPLICATION AND DAILY DOSE: 20 MG + 50 MG
     Route: 048
     Dates: start: 20160204, end: 20160601

REACTIONS (3)
  - Atrial flutter [Recovered/Resolved]
  - Atrial fibrillation [Recovered/Resolved]
  - Cardiac failure congestive [Recovered/Resolved]

NARRATIVE: CASE EVENT DATE: 20150925
